FAERS Safety Report 24014327 (Version 1)
Quarter: 2024Q2

REPORT INFORMATION
  Report Type: Spontaneous
  Country: CN (occurrence: CN)
  Receive Date: 20240626
  Receipt Date: 20240626
  Transmission Date: 20240715
  Serious: Yes (Hospitalization)
  Sender: FDA-Public Use
  Company Number: CN-STRIDES ARCOLAB LIMITED-2024SP007357

PATIENT
  Age: 17 Year
  Sex: Male

DRUGS (6)
  1. VANCOMYCIN [Suspect]
     Active Substance: VANCOMYCIN
     Indication: Intracranial infection
     Dosage: 1 GRAM, EVERY 12 HRS
     Route: 065
  2. VANCOMYCIN [Suspect]
     Active Substance: VANCOMYCIN
     Indication: Bacteraemia
     Dosage: 1 GRAM, EVERY 8 HOURS
     Route: 065
  3. MEROPENEM [Suspect]
     Active Substance: MEROPENEM
     Indication: Intracranial infection
     Dosage: UNK
     Route: 065
  4. MEROPENEM [Suspect]
     Active Substance: MEROPENEM
     Indication: Bacteraemia
  5. LINEZOLID [Suspect]
     Active Substance: LINEZOLID
     Indication: Intracranial infection
     Dosage: UNK
     Route: 065
  6. LINEZOLID [Suspect]
     Active Substance: LINEZOLID
     Indication: Bacteraemia

REACTIONS (4)
  - Drug-induced liver injury [Recovered/Resolved]
  - Epistaxis [Unknown]
  - Mouth haemorrhage [Unknown]
  - Off label use [Unknown]
